FAERS Safety Report 9286294 (Version 2)
Quarter: 2013Q2

REPORT INFORMATION
  Report Type: Spontaneous
  Country: MY (occurrence: None)
  Receive Date: 20130508
  Receipt Date: 20130524
  Transmission Date: 20140414
  Serious: Yes (Other)
  Sender: FDA-Public Use
  Company Number: MY-1198073

PATIENT
  Sex: Male
  Weight: 1.6 kg

DRUGS (3)
  1. CYCLOMYDRIL [Suspect]
     Indication: RETINOPATHY OF PREMATURITY
     Route: 047
     Dates: start: 20110811, end: 20110811
  2. ENEMA [Concomitant]
  3. CAFFEINE [Concomitant]

REACTIONS (3)
  - Necrotising colitis [None]
  - Apnoea [None]
  - Bradycardia [None]
